FAERS Safety Report 4705925-5 (Version None)
Quarter: 2005Q2

REPORT INFORMATION
  Report Type: 
  Country: None (occurrence: None)
  Receive Date: 20050629
  Receipt Date: 20050611
  Transmission Date: 20051028
  Serious: Yes (Hospitalization)
  Sender: FDA-Public Use
  Company Number: 1839

PATIENT
  Age: 28 Year
  Sex: Female

DRUGS (6)
  1. AVINZA [Suspect]
     Indication: BACK PAIN
     Dosage: 60 MG QD PO
     Route: 048
  2. DILAUDID [Suspect]
     Dosage: 4 MG QID IV
     Route: 042
  3. HYDROMORPHONE HYDROCHLORIDE [Concomitant]
  4. FLUOXETINE [Concomitant]
  5. VENLAFAXINE HCL [Concomitant]
  6. ZOLPIDEM [Concomitant]

REACTIONS (4)
  - ANXIETY [None]
  - INCORRECT ROUTE OF DRUG ADMINISTRATION [None]
  - INTENTIONAL MISUSE [None]
  - PNEUMONIA [None]
